FAERS Safety Report 17545162 (Version 1)
Quarter: 2020Q1

REPORT INFORMATION
  Report Type: Spontaneous
  Country: US (occurrence: US)
  Receive Date: 20200313
  Receipt Date: 20200313
  Transmission Date: 20200409
  Serious: Yes (Life-Threatening)
  Sender: FDA-Public Use
  Company Number: US-STASON PHARMACEUTICALS, INC.-2081625

PATIENT
  Age: 15 Year
  Sex: Male
  Weight: 107 kg

DRUGS (1)
  1. MERCAPTOPURINE. [Suspect]
     Active Substance: MERCAPTOPURINE

REACTIONS (1)
  - Anaphylactic reaction [Recovering/Resolving]
